FAERS Safety Report 8200317-9 (Version None)
Quarter: 2012Q1

REPORT INFORMATION
  Report Type: 
  Country: None (occurrence: None)
  Receive Date: 20120312
  Receipt Date: 20120307
  Transmission Date: 20120608
  Serious: Yes (Other)
  Sender: FDA-Public Use
  Company Number: US-AMGEN-USASP2012010774

PATIENT
  Age: 68 Year
  Sex: Female
  Weight: 89 kg

DRUGS (2)
  1. PROLIA [Suspect]
     Indication: OSTEOPOROSIS POSTMENOPAUSAL
     Route: 030
     Dates: start: 20101201
  2. ACTONEL [Suspect]
     Indication: OSTEOPOROSIS
     Dosage: 35 UNK, UNK
     Route: 048
     Dates: start: 20030101, end: 20100101

REACTIONS (1)
  - OSTEONECROSIS OF JAW [None]
